FAERS Safety Report 10799075 (Version 1)
Quarter: 2015Q1

REPORT INFORMATION
  Report Type: Spontaneous
  Country: US (occurrence: US)
  Receive Date: 20150216
  Receipt Date: 20150216
  Transmission Date: 20150721
  Serious: No
  Sender: FDA-Public Use
  Company Number: US-ALLERGAN-1404603US

PATIENT
  Age: 74 Year
  Sex: Female

DRUGS (2)
  1. RESTASIS [Suspect]
     Active Substance: CYCLOSPORINE
     Indication: DRY EYE
     Dosage: 2 GTT, BID
     Route: 047
     Dates: end: 20140308
  2. ARTIFICIAL TEARS [Concomitant]
     Active Substance: GLYCERIN\HYPROMELLOSES\POLYETHYLENE GLYCOL 400
     Indication: EYE LUBRICATION THERAPY
     Dosage: 2 GTT, BID-PRN
     Route: 047

REACTIONS (4)
  - Feeling hot [Recovered/Resolved]
  - Paraesthesia oral [Recovered/Resolved]
  - Erythema [Recovered/Resolved]
  - Sensory disturbance [Recovered/Resolved]
